FAERS Safety Report 6032752-1 (Version None)
Quarter: 2009Q1

REPORT INFORMATION
  Report Type: 
  Country: None (occurrence: None)
  Receive Date: 20090105
  Receipt Date: 20081016
  Transmission Date: 20090719
  Serious: Yes (Hospitalization)
  Sender: FDA-Public Use
  Company Number: US-001985

PATIENT
  Age: 50 Year
  Sex: Female
  Weight: 93.6 kg

DRUGS (2)
  1. MULTIHANCE [Suspect]
     Indication: MULTIPLE SCLEROSIS
     Dosage: 10ML QD INTRAVENOUS
     Route: 042
     Dates: start: 20081009, end: 20081009
  2. MULTIHANCE [Suspect]
     Indication: NUCLEAR MAGNETIC RESONANCE IMAGING BRAIN
     Dosage: 10ML QD INTRAVENOUS
     Route: 042
     Dates: start: 20081009, end: 20081009

REACTIONS (1)
  - ANAPHYLACTOID REACTION [None]
